FAERS Safety Report 4558924-0 (Version None)
Quarter: 2005Q1

REPORT INFORMATION
  Report Type: 
  Country: None (occurrence: None)
  Receive Date: 20050121
  Receipt Date: 20050112
  Transmission Date: 20050727
  Serious: Yes (Hospitalization)
  Sender: FDA-Public Use
  Company Number: DE-MERCK-0501DEU00154

PATIENT
  Age: 48 Year
  Sex: Female

DRUGS (7)
  1. VIOXX [Suspect]
     Route: 048
     Dates: start: 20000801, end: 20041012
  2. HYPERICIN [Concomitant]
     Route: 065
  3. GLIMEPIRIDE [Concomitant]
     Route: 065
  4. AMITRIPTYLINE HYDROCHLORIDE [Concomitant]
     Route: 065
  5. BETAXOLOL HYDROCHLORIDE [Concomitant]
     Route: 065
  6. HYDROCHLOROTHIAZIDE AND VALSARTAN [Concomitant]
     Route: 065
  7. DICLOFENAC [Concomitant]
     Route: 065

REACTIONS (7)
  - ANXIETY [None]
  - FEELING HOT AND COLD [None]
  - HYPERVENTILATION [None]
  - HYPOTENSION [None]
  - PARAESTHESIA [None]
  - SYNCOPE [None]
  - VERTIGO [None]
